FAERS Safety Report 10196203 (Version 1)
Quarter: 2014Q2

REPORT INFORMATION
  Report Type: Spontaneous
  Country: US (occurrence: US)
  Receive Date: 20140527
  Receipt Date: 20140527
  Transmission Date: 20141212
  Serious: Yes (Other)
  Sender: FDA-Public Use
  Company Number: US-BAYER-2014-076084

PATIENT
  Age: 56 Year
  Sex: Male

DRUGS (1)
  1. AVELOX [Suspect]
     Indication: BRONCHITIS
     Dosage: 400 MG, BID
     Route: 048
     Dates: start: 20131103, end: 20131108

REACTIONS (2)
  - Tendon rupture [None]
  - Tendon injury [None]
